FAERS Safety Report 10259843 (Version 1)
Quarter: 2014Q2

REPORT INFORMATION
  Report Type: Spontaneous
  Country: US (occurrence: US)
  Receive Date: 20140625
  Receipt Date: 20140625
  Transmission Date: 20141212
  Serious: Yes (Hospitalization)
  Sender: FDA-Public Use
  Company Number: US-ELI_LILLY_AND_COMPANY-US201406005514

PATIENT
  Sex: Female

DRUGS (14)
  1. HUMALOG 25% LISPRO, 75% NPL [Suspect]
     Indication: DIABETES MELLITUS
     Dosage: 130 DF, EACH MORNING
     Route: 065
  2. HUMALOG 25% LISPRO, 75% NPL [Suspect]
     Dosage: 65 DF, EACH EVENING
     Route: 065
  3. METFORMIN [Concomitant]
     Dosage: 1000 MG, BID
  4. LISINOPRIL [Concomitant]
     Dosage: 20 MG, BID
  5. SIMVASTATIN [Concomitant]
     Dosage: 1 DF, EACH EVENING
  6. ISOSORBIDE [Concomitant]
     Dosage: 30 MG, QD
  7. MONTELUKAST SODIUM [Concomitant]
     Dosage: 10 MG, EACH EVENING
  8. NAPROXEN [Concomitant]
     Dosage: 500 MG, BID
  9. OMEPRAZOLE [Concomitant]
     Dosage: 20 MG, EACH MORNING
  10. KLOR-CON [Concomitant]
     Dosage: 20 MG, QD
  11. ASPIRIN BAYER [Concomitant]
     Dosage: 325 MG, QD
  12. METOPROLOL [Concomitant]
     Dosage: 25 MG, BID
  13. RANITIDINE [Concomitant]
     Dosage: 150 MG, BID
  14. FUROSEMIDE [Concomitant]
     Dosage: 80 MG, QD

REACTIONS (6)
  - Chest discomfort [Unknown]
  - Chest pain [Unknown]
  - Cough [Not Recovered/Not Resolved]
  - Blood glucose increased [Unknown]
  - Hypersensitivity [Unknown]
  - Incorrect product storage [Unknown]
